FAERS Safety Report 4736226-7 (Version None)
Quarter: 2005Q3

REPORT INFORMATION
  Report Type: 
  Country: None (occurrence: None)
  Receive Date: 20050808
  Receipt Date: 20050727
  Transmission Date: 20060218
  Serious: Yes (Other)
  Sender: FDA-Public Use
  Company Number: PHBS2005US11067

PATIENT
  Age: 31 Year
  Sex: Female

DRUGS (1)
  1. OXYTOCIN [Suspect]

REACTIONS (6)
  - AMNIOTIC FLUID EMBOLUS [None]
  - BLOOD PRESSURE DECREASED [None]
  - COAGULOPATHY [None]
  - DRUG INEFFECTIVE [None]
  - OXYGEN SATURATION DECREASED [None]
  - PCO2 DECREASED [None]
